FAERS Safety Report 9538299 (Version 2)
Quarter: 2013Q4

REPORT INFORMATION
  Report Type: Spontaneous
  Country: FR (occurrence: FR)
  Receive Date: 20130920
  Receipt Date: 20131114
  Transmission Date: 20140711
  Serious: Yes (Other)
  Sender: FDA-Public Use
  Company Number: FR-ASTRAZENECA-2013SE69559

PATIENT
  Age: 18232 Day
  Sex: Female
  Weight: 65 kg

DRUGS (9)
  1. XEROQUEL [Suspect]
     Indication: DEPRESSION
     Route: 048
     Dates: start: 20130628, end: 20130701
  2. XEROQUEL [Suspect]
     Indication: DEPRESSION
     Route: 048
     Dates: start: 20130702, end: 20130705
  3. XEROQUEL [Suspect]
     Indication: DEPRESSION
     Route: 048
     Dates: start: 20130706, end: 20130708
  4. XEROQUEL [Suspect]
     Indication: DEPRESSION
     Route: 048
     Dates: start: 20130709, end: 20131002
  5. LYSANXIA [Concomitant]
     Indication: ANXIETY
     Route: 048
  6. LYSANXIA [Concomitant]
     Indication: ANXIETY
     Route: 048
     Dates: start: 201307
  7. CLOMIPRAMINE [Concomitant]
     Indication: DEPRESSION
     Route: 048
  8. CLOMIPRAMINE [Concomitant]
     Indication: DEPRESSION
     Route: 048
     Dates: start: 201306
  9. CORTANCYL [Concomitant]
     Indication: SYSTEMIC LUPUS ERYTHEMATOSUS
     Route: 048

REACTIONS (2)
  - Phlebitis [Recovered/Resolved]
  - Deep vein thrombosis [Recovered/Resolved]
